FAERS Safety Report 21930407 (Version 2)
Quarter: 2023Q1

REPORT INFORMATION
  Report Type: Spontaneous
  Country: GB (occurrence: GB)
  Receive Date: 20230131
  Receipt Date: 20230305
  Transmission Date: 20230417
  Serious: Yes (Death, Other)
  Sender: FDA-Public Use
  Company Number: GB-MHRA-CER-RYJ-4554206679

PATIENT
  Age: 1 Year
  Sex: Female

DRUGS (3)
  1. SIMVASTATIN [Suspect]
     Active Substance: SIMVASTATIN
     Indication: Product used for unknown indication
     Dosage: AT BEDTIME
     Route: 048
     Dates: start: 20230116, end: 20230117
  2. GLUCOSE POLYMER HYDROGENATED [Concomitant]
     Indication: Product used for unknown indication
     Dosage: 1 SCOOP(S), ENTERAL
     Route: 065
     Dates: start: 20221013, end: 20221201
  3. VANCOMYCIN [Concomitant]
     Active Substance: VANCOMYCIN
     Indication: Sepsis
     Dosage: 100 MILLIGRAM
     Route: 042
     Dates: start: 20221019, end: 20221201

REACTIONS (1)
  - Myalgia [Fatal]
